FAERS Safety Report 18559746 (Version 3)
Quarter: 2021Q1

REPORT INFORMATION
  Report Type: Spontaneous
  Country: US (occurrence: US)
  Receive Date: 20201130
  Receipt Date: 20210225
  Transmission Date: 20210419
  Serious: No
  Sender: FDA-Public Use
  Company Number: US-ASTRAZENECA-2020SF45965

PATIENT
  Sex: Female
  Weight: 77.1 kg

DRUGS (1)
  1. BYDUREON BCISE [Suspect]
     Active Substance: EXENATIDE
     Indication: GLUCOSE TOLERANCE IMPAIRED
     Route: 058
     Dates: start: 202008

REACTIONS (6)
  - Device malfunction [Unknown]
  - Injection site nodule [Unknown]
  - Intentional product misuse [Unknown]
  - Product dose omission in error [Unknown]
  - Incorrect dose administered by device [Unknown]
  - Device leakage [Unknown]
